FAERS Safety Report 20123536 (Version 1)
Quarter: 2021Q4

REPORT INFORMATION
  Report Type: Spontaneous
  Country: US (occurrence: US)
  Receive Date: 20211129
  Receipt Date: 20211129
  Transmission Date: 20220303
  Serious: No
  Sender: FDA-Public Use
  Company Number: US-AMGEN-USASP2021186448

PATIENT
  Age: 59 Year
  Sex: Female

DRUGS (2)
  1. MVASI [Suspect]
     Active Substance: BEVACIZUMAB-AWWB
     Indication: Ovarian cancer
     Dosage: 800 MILLIGRAM
     Route: 065
     Dates: start: 20210124
  2. MVASI [Suspect]
     Active Substance: BEVACIZUMAB-AWWB
     Dosage: 800 MILLIGRAM
     Route: 065
     Dates: start: 20211029

REACTIONS (1)
  - Positron emission tomogram abnormal [Unknown]

NARRATIVE: CASE EVENT DATE: 20211119
